FAERS Safety Report 15701811 (Version 1)
Quarter: 2018Q4

REPORT INFORMATION
  Report Type: Spontaneous
  Country: IT (occurrence: IT)
  Receive Date: 20181208
  Receipt Date: 20181208
  Transmission Date: 20190205
  Serious: Yes (Hospitalization)
  Sender: FDA-Public Use
  Company Number: IT-TEVA-2018-IT-983695

PATIENT
  Age: 87 Year
  Sex: Female

DRUGS (7)
  1. SIVASTIN 20 MG COMPRESSE RIVESTITE CON FILM [Concomitant]
  2. BLOPRESID 32 MG/25 MG COMPRESSE [Suspect]
     Active Substance: CANDESARTAN CILEXETIL\HYDROCHLOROTHIAZIDE
     Indication: HYPERTENSION
     Dosage: 1 DOSAGE FORMS DAILY;
     Route: 048
     Dates: start: 20180101, end: 20181008
  3. LANSOX [Concomitant]
     Active Substance: LANSOPRAZOLE
  4. CALCITRIOL. [Concomitant]
     Active Substance: CALCITRIOL
  5. LASIX [Suspect]
     Active Substance: FUROSEMIDE
     Indication: HYPERTENSION
     Route: 048
     Dates: start: 20181008, end: 20181009
  6. CARDIRENE 75 MG [Concomitant]
     Active Substance: ASPIRIN DL-LYSINE
  7. VALSARTAN/IDROCLOROTIAZIDE [Suspect]
     Active Substance: HYDROCHLOROTHIAZIDE\VALSARTAN
     Indication: HYPERTENSION
     Dosage: 320 MILLIGRAM DAILY;
     Route: 048
     Dates: start: 20181008, end: 20181010

REACTIONS (3)
  - Hyponatraemia [Unknown]
  - Loss of consciousness [Unknown]
  - Confusional state [Unknown]

NARRATIVE: CASE EVENT DATE: 20181010
